FAERS Safety Report 10877542 (Version 1)
Quarter: 2015Q1

REPORT INFORMATION
  Report Type: Spontaneous
  Country: TR (occurrence: TR)
  Receive Date: 20150302
  Receipt Date: 20150302
  Transmission Date: 20150721
  Serious: Yes (Hospitalization)
  Sender: FDA-Public Use
  Company Number: TR-ACTAVIS-2015-03611

PATIENT
  Age: 23 Year
  Sex: Male

DRUGS (1)
  1. TETRADOX [Suspect]
     Active Substance: DOXYCYCLINE HYDROCHLORIDE
     Indication: NASOPHARYNGITIS
     Dosage: 1 DF, DAILY
     Route: 048

REACTIONS (2)
  - Oesophageal perforation [Not Recovered/Not Resolved]
  - Feeding disorder [Not Recovered/Not Resolved]
